FAERS Safety Report 25730219 (Version 1)
Quarter: 2025Q3

REPORT INFORMATION
  Report Type: Spontaneous
  Country: JP (occurrence: JP)
  Receive Date: 20250827
  Receipt Date: 20250827
  Transmission Date: 20251020
  Serious: Yes (Hospitalization)
  Sender: ROCHE
  Company Number: JP-CHUGAI-2025026774

PATIENT
  Age: 9 Decade
  Sex: Male

DRUGS (3)
  1. TECENTRIQ [Suspect]
     Active Substance: ATEZOLIZUMAB
     Indication: Squamous cell carcinoma of lung
     Route: 042
  2. CELLCEPT [Suspect]
     Active Substance: MYCOPHENOLATE MOFETIL
     Indication: Immune-mediated hepatic disorder
     Route: 050
  3. CAPMATINIB HYDROCHLORIDE [Concomitant]
     Active Substance: CAPMATINIB HYDROCHLORIDE
     Indication: Squamous cell carcinoma of lung
     Route: 065

REACTIONS (2)
  - Liver disorder [Recovering/Resolving]
  - Off label use [Unknown]
